FAERS Safety Report 7956988-5 (Version None)
Quarter: 2011Q4

REPORT INFORMATION
  Report Type: 
  Country: None (occurrence: None)
  Receive Date: 20111205
  Receipt Date: 20111205
  Transmission Date: 20120403
  Serious: Yes (Other)
  Sender: FDA-Public Use
  Company Number: None

PATIENT
  Sex: Male
  Weight: 47.627 kg

DRUGS (1)
  1. ZOMIG [Suspect]
     Indication: MIGRAINE
     Dosage: 1 TABLET
     Route: 048
     Dates: start: 20111201, end: 20111201

REACTIONS (3)
  - PAIN IN JAW [None]
  - THROAT TIGHTNESS [None]
  - HEADACHE [None]
